FAERS Safety Report 9276861 (Version 1)
Quarter: 2013Q2

REPORT INFORMATION
  Report Type: Spontaneous
  Country: US (occurrence: US)
  Receive Date: 20130507
  Receipt Date: 20130507
  Transmission Date: 20140414
  Serious: Yes (Other)
  Sender: FDA-Public Use
  Company Number: US-UCBSA-083563

PATIENT
  Age: 29 Year
  Sex: Female
  Weight: 56.7 kg

DRUGS (7)
  1. CIMZIA [Suspect]
     Indication: CROHN^S DISEASE
     Dates: start: 201207
  2. CIMZIA [Suspect]
     Indication: COLITIS ULCERATIVE
     Dates: start: 201207
  3. COUMADIN [Suspect]
     Dosage: DOSE UNKNOWN
     Dates: start: 2013
  4. TMP [Concomitant]
     Dosage: UNKNOWN DOSE
     Dates: start: 2013
  5. HEPARIN [Concomitant]
     Dosage: DOSE UNKNOWN
  6. ASACOL HD [Concomitant]
     Indication: COLITIS ULCERATIVE
     Dates: start: 201110
  7. PREDNISONE [Concomitant]
     Indication: COLITIS ULCERATIVE
     Dates: start: 20130401, end: 2013

REACTIONS (5)
  - May-Thurner syndrome [Unknown]
  - Thrombosis [Unknown]
  - Compartment syndrome [Unknown]
  - Haematoma [Unknown]
  - Local swelling [Not Recovered/Not Resolved]
